FAERS Safety Report 9535859 (Version 1)
Quarter: 2013Q3

REPORT INFORMATION
  Report Type: Spontaneous
  Country: US (occurrence: None)
  Receive Date: 20130917
  Receipt Date: 20130917
  Transmission Date: 20140515
  Serious: No
  Sender: FDA-Public Use
  Company Number: None

PATIENT
  Age: 33 Year
  Sex: Female
  Weight: 66.13 kg

DRUGS (1)
  1. CISPLATIN [Suspect]
     Dosage: ARM B:  INTERVENTION ARM, CONCURRENT CHEMO-RADIATION FOLLOWED BY ADJUVANT CHEMOTHERAPY

REACTIONS (1)
  - Lymphocyte count decreased [None]
